FAERS Safety Report 9255625 (Version 2)
Quarter: 2013Q2

REPORT INFORMATION
  Report Type: Spontaneous
  Country: JP (occurrence: JP)
  Receive Date: 20130425
  Receipt Date: 20130530
  Transmission Date: 20140414
  Serious: Yes (Hospitalization)
  Sender: FDA-Public Use
  Company Number: JP-GLAXOSMITHKLINE-B0885009A

PATIENT
  Age: 76 Year
  Sex: Male

DRUGS (2)
  1. VALTREX [Suspect]
     Indication: HERPES ZOSTER
     Dosage: 500MG PER DAY
     Route: 048
     Dates: start: 20130409, end: 20130411
  2. PLAVIX [Concomitant]
     Indication: ANGINA PECTORIS
     Dosage: 75MG PER DAY
     Route: 048
     Dates: start: 20130318

REACTIONS (5)
  - Nervous system disorder [Recovered/Resolved]
  - Dysarthria [Not Recovered/Not Resolved]
  - Dysarthria [Not Recovered/Not Resolved]
  - Hallucination [Not Recovered/Not Resolved]
  - Abnormal behaviour [Unknown]
